FAERS Safety Report 25158840 (Version 3)
Quarter: 2025Q2

REPORT INFORMATION
  Report Type: Spontaneous
  Country: US (occurrence: US)
  Receive Date: 20250404
  Receipt Date: 20250423
  Transmission Date: 20250717
  Serious: Yes (Hospitalization)
  Sender: ALEXION PHARMACEUTICALS
  Company Number: US-AstraZeneca-CH-00836223AP

PATIENT

DRUGS (1)
  1. FARXIGA [Suspect]
     Active Substance: DAPAGLIFLOZIN PROPANEDIOL
     Dosage: 10 MILLIGRAM, QD
     Route: 065

REACTIONS (13)
  - Pain in extremity [Unknown]
  - Product dose omission issue [Unknown]
  - Renal pain [Unknown]
  - Product contamination physical [Unknown]
  - Breast pain [Unknown]
  - Back pain [Unknown]
  - General physical condition abnormal [Unknown]
  - Mental disorder [Unknown]
  - Product use issue [Unknown]
  - Product packaging issue [Unknown]
  - Hospitalisation [Unknown]
  - Arthralgia [Unknown]
  - Malaise [Unknown]
